FAERS Safety Report 6932796-9 (Version None)
Quarter: 2010Q3

REPORT INFORMATION
  Report Type: 
  Country: None (occurrence: None)
  Receive Date: 20100819
  Receipt Date: 20100809
  Transmission Date: 20110219
  Serious: Yes (Hospitalization, Disabling)
  Sender: FDA-Public Use
  Company Number: BR-PFIZER INC-2010061540

PATIENT
  Age: 65 Year
  Sex: Female
  Weight: 68.5 kg

DRUGS (12)
  1. CHAMPIX [Suspect]
     Indication: TOBACCO USER
     Dosage: UNK
     Route: 048
     Dates: start: 20100509, end: 20100101
  2. CHAMPIX [Suspect]
     Dosage: 0.5 MG, 2X/DAY (EVERY 12 HOURS)
     Route: 048
     Dates: start: 20100101, end: 20100101
  3. CHAMPIX [Suspect]
     Dosage: 1 MG, 2X/DAY (EVERY 12 HOURS)
     Route: 048
     Dates: start: 20100101, end: 20100728
  4. AMIODARONE [Concomitant]
     Indication: ARRHYTHMIA
     Dosage: UNK
  5. OMEPRAZOLE [Concomitant]
     Indication: GASTRIC DISORDER
     Dosage: UNK
  6. BALCOR [Concomitant]
     Indication: CARDIAC DISORDER
     Dosage: UNK
  7. BALCOR [Concomitant]
     Indication: ANGIOPLASTY
  8. BALCOR [Concomitant]
     Indication: CORONARY ARTERY OCCLUSION
  9. SIMVASTATIN [Concomitant]
     Indication: BLOOD CHOLESTEROL
     Dosage: UNK
  10. METFORMIN [Concomitant]
     Indication: DIABETES MELLITUS
     Dosage: UNK
  11. GALVUS [Concomitant]
     Indication: DIABETES MELLITUS
     Dosage: UNK
  12. GALVUS [Concomitant]
     Indication: BLOOD TRIGLYCERIDES

REACTIONS (5)
  - BLOOD GLUCOSE INCREASED [None]
  - CARDIAC DISORDER [None]
  - DEPRESSED LEVEL OF CONSCIOUSNESS [None]
  - EATING DISORDER [None]
  - NAUSEA [None]
